FAERS Safety Report 11260188 (Version 2)
Quarter: 2015Q3

REPORT INFORMATION
  Report Type: Spontaneous
  Country: US (occurrence: US)
  Receive Date: 20150710
  Receipt Date: 20150924
  Transmission Date: 20151125
  Serious: Yes (Death, Hospitalization, Other)
  Sender: FDA-Public Use
  Company Number: US-PFIZER INC-2015227197

PATIENT
  Age: 53 Year
  Sex: Male

DRUGS (10)
  1. TESTRED [Suspect]
     Active Substance: METHYLTESTOSTERONE
     Indication: ASTHENIA
  2. PROZAC [Concomitant]
     Active Substance: FLUOXETINE HYDROCHLORIDE
     Indication: AFFECTIVE DISORDER
     Dosage: UNK
     Dates: start: 1993, end: 201308
  3. TESTRED [Suspect]
     Active Substance: METHYLTESTOSTERONE
     Indication: WEIGHT INCREASED
  4. DEPO-TESTOSTERONE [Suspect]
     Active Substance: TESTOSTERONE CYPIONATE
     Indication: HORMONE REPLACEMENT THERAPY
     Dosage: UNK
     Dates: start: 2007, end: 201308
  5. TESTOSTERONE CIPIONATE [Suspect]
     Active Substance: TESTOSTERONE
     Indication: LIBIDO DECREASED
  6. TESTOSTERONE CIPIONATE [Suspect]
     Active Substance: TESTOSTERONE
     Indication: HORMONE REPLACEMENT THERAPY
     Dosage: 1 ML, 2X/WEEK
     Dates: start: 1999, end: 2013
  7. TESTRED [Suspect]
     Active Substance: METHYLTESTOSTERONE
     Indication: HORMONE REPLACEMENT THERAPY
     Dosage: 2 DF, 4X/DAY (TWO CAPSULES)
  8. TESTOSTERONE CIPIONATE [Suspect]
     Active Substance: TESTOSTERONE
     Indication: WEIGHT INCREASED
  9. TESTRED [Suspect]
     Active Substance: METHYLTESTOSTERONE
     Indication: LIBIDO DECREASED
  10. TESTOSTERONE CIPIONATE [Suspect]
     Active Substance: TESTOSTERONE
     Indication: ASTHENIA

REACTIONS (4)
  - Transient ischaemic attack [Unknown]
  - Myocardial infarction [Fatal]
  - Coronary artery occlusion [Unknown]
  - Heart rate irregular [Unknown]

NARRATIVE: CASE EVENT DATE: 2002
